FAERS Safety Report 8177689-7 (Version None)
Quarter: 2012Q1

REPORT INFORMATION
  Report Type: 
  Country: None (occurrence: None)
  Receive Date: 20120301
  Receipt Date: 20120224
  Transmission Date: 20120608
  Serious: Yes (Hospitalization, Other)
  Sender: FDA-Public Use
  Company Number: PHHY2011JP56384

PATIENT
  Sex: Male

DRUGS (6)
  1. LEVEMIR [Concomitant]
     Dosage: 24 DF, UNK
     Route: 058
  2. APHTASOLON [Concomitant]
     Dates: start: 20110222, end: 20110308
  3. SUNITINIB MALATE [Concomitant]
     Indication: METASTATIC RENAL CELL CARCINOMA
     Dosage: 37.5 MG, UNK
     Route: 048
     Dates: start: 20100622, end: 20110117
  4. HUMALOG [Concomitant]
     Dosage: 60 DF, UNK
     Route: 058
  5. AFINITOR [Suspect]
     Indication: METASTATIC RENAL CELL CARCINOMA
     Dosage: 10 MG, DAILY
     Route: 048
     Dates: start: 20110208, end: 20111004
  6. CANDESARTAN CILEXETIL [Concomitant]
     Dosage: 8 MG, UNK
     Route: 048
     Dates: start: 20110419

REACTIONS (7)
  - C-REACTIVE PROTEIN INCREASED [None]
  - DYSLIPIDAEMIA [None]
  - NEOPLASM PROGRESSION [None]
  - HYPERTENSION [None]
  - NEOPLASM MALIGNANT [None]
  - ANAEMIA [None]
  - HYPERGLYCAEMIA [None]
